FAERS Safety Report 17998036 (Version 1)
Quarter: 2020Q3

REPORT INFORMATION
  Report Type: Other
  Country: FR (occurrence: FR)
  Receive Date: 20200709
  Receipt Date: 20200709
  Transmission Date: 20201103
  Serious: Yes (Hospitalization)
  Sender: FDA-Public Use
  Company Number: FR-CELLTRION INC.-2020FR023929

PATIENT

DRUGS (2)
  1. RITUXIMAB (UNKNOWN) [Suspect]
     Active Substance: RITUXIMAB
     Indication: GAMMOPATHY
     Dosage: 1 {DF}
     Route: 058
     Dates: start: 2018, end: 201908
  2. AMOXICILLINE [AMOXICILLIN] [Suspect]
     Active Substance: AMOXICILLIN
     Indication: DIARRHOEA
     Dosage: 3 G
     Route: 048
     Dates: start: 20200510, end: 20200515

REACTIONS (3)
  - Off label use [Unknown]
  - Product use issue [Unknown]
  - Agranulocytosis [Recovered/Resolved]

NARRATIVE: CASE EVENT DATE: 20200515
